FAERS Safety Report 6583109-6 (Version None)
Quarter: 2010Q1

REPORT INFORMATION
  Report Type: 
  Country: None (occurrence: None)
  Receive Date: 20100216
  Receipt Date: 20100211
  Transmission Date: 20100710
  Serious: Yes (Hospitalization)
  Sender: FDA-Public Use
  Company Number: KR-MERCK-1002KOR00023

PATIENT
  Age: 51 Year
  Sex: Male
  Weight: 59 kg

DRUGS (3)
  1. VYTORIN [Suspect]
     Indication: HYPERLIPIDAEMIA
     Route: 048
     Dates: start: 20050913, end: 20051001
  2. VYTORIN [Suspect]
     Route: 048
     Dates: start: 20051005
  3. ASPIRIN [Concomitant]
     Indication: THROMBOSIS PROPHYLAXIS
     Route: 065
     Dates: start: 20030921, end: 20051001

REACTIONS (1)
  - GASTROINTESTINAL HAEMORRHAGE [None]
